FAERS Safety Report 18535823 (Version 2)
Quarter: 2023Q2

REPORT INFORMATION
  Report Type: Spontaneous
  Country: CA (occurrence: CA)
  Receive Date: 20201123
  Receipt Date: 20230403
  Transmission Date: 20230721
  Serious: Yes (Death)
  Sender: FDA-Public Use
  Company Number: CA-009507513-2011CAN012640

PATIENT
  Age: 60 Year
  Sex: Female
  Weight: 54.431 kg

DRUGS (4)
  1. KEYTRUDA [Suspect]
     Active Substance: PEMBROLIZUMAB
     Indication: Lung neoplasm malignant
     Dosage: UNK
     Route: 065
  2. KEYTRUDA [Suspect]
     Active Substance: PEMBROLIZUMAB
     Indication: Adenocarcinoma metastatic
  3. ASENAPINE [Concomitant]
     Active Substance: ASENAPINE
  4. ATENOLOL [Concomitant]
     Active Substance: ATENOLOL

REACTIONS (5)
  - Acute kidney injury [Fatal]
  - Febrile neutropenia [Fatal]
  - Pneumonitis [Fatal]
  - Septic shock [Fatal]
  - Small intestinal obstruction [Fatal]

NARRATIVE: CASE EVENT DATE: 20200101
